FAERS Safety Report 4377694-2 (Version None)
Quarter: 2004Q2

REPORT INFORMATION
  Report Type: 
  Country: None (occurrence: None)
  Receive Date: 20040608
  Receipt Date: 20040525
  Transmission Date: 20050107
  Serious: Yes (Disabling)
  Sender: FDA-Public Use
  Company Number: 04P-167-0254092-00

PATIENT
  Age: 79 Year
  Sex: Male

DRUGS (6)
  1. DEPAKOTE [Suspect]
     Dosage: 500 MG, 2 IN 1 D, PER ORAL
     Route: 048
     Dates: start: 20010301, end: 20030901
  2. RIVASTIGMINE [Concomitant]
  3. VENLAFAXINE [Concomitant]
  4. OMEPRAZOLE [Concomitant]
  5. OLANZAPINE [Concomitant]
  6. MIRTAZAPINE [Concomitant]

REACTIONS (4)
  - MOBILITY DECREASED [None]
  - PARKINSONISM [None]
  - SUPRANUCLEAR PALSY [None]
  - WHEELCHAIR USER [None]
